FAERS Safety Report 4550462-4 (Version None)
Quarter: 2004Q4

REPORT INFORMATION
  Report Type: 
  Country: None (occurrence: None)
  Receive Date: 20041217
  Receipt Date: 20040901
  Transmission Date: 20050328
  Serious: No
  Sender: FDA-Public Use
  Company Number: 2004-BP-07579BP

PATIENT
  Sex: Female

DRUGS (4)
  1. SPIRIVA [Suspect]
     Indication: CHRONIC OBSTRUCTIVE AIRWAYS DISEASE
     Dosage: 18 MCG (18 MCG), IH
     Route: 025
     Dates: start: 20040822, end: 20040823
  2. FORADIL [Concomitant]
  3. COMBIVENT [Concomitant]
  4. ASPIRIN [Concomitant]

REACTIONS (1)
  - VISION BLURRED [None]
